FAERS Safety Report 21219165 (Version 1)
Quarter: 2022Q3

REPORT INFORMATION
  Report Type: Report from Study
  Country: BR (occurrence: BR)
  Receive Date: 20220816
  Receipt Date: 20220816
  Transmission Date: 20221027
  Serious: Yes (Other)
  Sender: FDA-Public Use
  Company Number: BR-ABBVIE-22K-020-4501267-00

PATIENT
  Sex: Female
  Weight: 39.1 kg

DRUGS (8)
  1. RINVOQ [Suspect]
     Active Substance: UPADACITINIB
     Indication: Rheumatoid arthritis
     Dosage: ONCE A DAY
     Route: 048
     Dates: start: 20211221
  2. BETA [Concomitant]
     Indication: Pain
  3. PREDNISONE [Concomitant]
     Active Substance: PREDNISONE
     Indication: Antiinflammatory therapy
  4. OMEPRAZOLE [Concomitant]
     Active Substance: OMEPRAZOLE
     Indication: Product used for unknown indication
  5. METHOTREXATE [Concomitant]
     Active Substance: METHOTREXATE
     Indication: Antiinflammatory therapy
     Dosage: EVERY FRIDAY
  6. CALCIUM [Concomitant]
     Active Substance: CALCIUM
     Indication: Pain
  7. FOLIC ACID [Concomitant]
     Active Substance: FOLIC ACID
     Indication: Pain
  8. RIVOTRIL [Concomitant]
     Active Substance: CLONAZEPAM
     Indication: Product used for unknown indication

REACTIONS (10)
  - Anal haemorrhage [Recovered/Resolved]
  - Dyschezia [Recovered/Resolved]
  - Arthropathy [Unknown]
  - Emotional distress [Unknown]
  - Asthenia [Recovering/Resolving]
  - Pain [Recovering/Resolving]
  - Swelling [Recovering/Resolving]
  - Mobility decreased [Recovering/Resolving]
  - Unevaluable event [Unknown]
  - Abdominal pain [Unknown]

NARRATIVE: CASE EVENT DATE: 20220101
